FAERS Safety Report 7891666-2 (Version None)
Quarter: 2011Q4

REPORT INFORMATION
  Report Type: 
  Country: None (occurrence: None)
  Receive Date: 20111103
  Receipt Date: 20110808
  Transmission Date: 20120403
  Serious: No
  Sender: FDA-Public Use
  Company Number: US-AMGEN-USASP2011040197

PATIENT
  Age: 58 Year
  Sex: Female

DRUGS (1)
  1. ENBREL [Suspect]
     Indication: ANKYLOSING SPONDYLITIS
     Dosage: 25 MG, 2 TIMES/WK
     Dates: start: 20060701, end: 20110804

REACTIONS (15)
  - OPEN WOUND [None]
  - THINKING ABNORMAL [None]
  - WEIGHT DECREASED [None]
  - SKIN EXFOLIATION [None]
  - ASTHENIA [None]
  - JAW DISORDER [None]
  - TOOTH ABSCESS [None]
  - DIZZINESS [None]
  - VOMITING [None]
  - HEADACHE [None]
  - MENIERE'S DISEASE [None]
  - PARANASAL SINUS HYPERSECRETION [None]
  - SKIN LESION [None]
  - HYPOTENSION [None]
  - LYMPHADENOPATHY [None]
